FAERS Safety Report 9144258 (Version 7)
Quarter: 2015Q1

REPORT INFORMATION
  Report Type: Spontaneous
  Country: US (occurrence: US)
  Receive Date: 20130306
  Receipt Date: 20150105
  Transmission Date: 20150721
  Serious: Yes (Hospitalization, Other)
  Sender: FDA-Public Use
  Company Number: US-009507513-1303USA002305

PATIENT
  Sex: Female

DRUGS (6)
  1. ALENDRONATE SODIUM. [Suspect]
     Active Substance: ALENDRONATE SODIUM
     Indication: OSTEOPOROSIS
     Dosage: 70 MG, UNK
     Route: 048
  2. FOSAMAX [Suspect]
     Active Substance: ALENDRONATE SODIUM
     Indication: OSTEOPOROSIS
     Dosage: 70 MG, QW
     Route: 048
     Dates: start: 20020319, end: 200912
  3. LEVOTHYROXINE SODIUM. [Concomitant]
     Active Substance: LEVOTHYROXINE SODIUM
     Indication: HYPOTHYROIDISM
     Dosage: UNK
     Dates: start: 1990
  4. ELAVIL [Concomitant]
     Active Substance: AMITRIPTYLINE HYDROCHLORIDE
     Indication: TENSION HEADACHE
     Dosage: UNK
     Dates: start: 2000, end: 2004
  5. VALTREX [Concomitant]
     Active Substance: VALACYCLOVIR HYDROCHLORIDE
     Indication: HERPES ZOSTER
     Dosage: UNK
     Dates: start: 1990, end: 2012
  6. ALENDRONATE SODIUM. [Suspect]
     Active Substance: ALENDRONATE SODIUM
     Dosage: UNK
     Route: 048
     Dates: start: 2009, end: 20090916

REACTIONS (51)
  - Fibula fracture [Recovered/Resolved with Sequelae]
  - Hip arthroplasty [Unknown]
  - Medical device removal [Unknown]
  - Femur fracture [Not Recovered/Not Resolved]
  - Anxiety [Unknown]
  - Iliotibial band syndrome [Unknown]
  - Calcium deficiency [Unknown]
  - Intramedullary rod insertion [Unknown]
  - Meniscus removal [Unknown]
  - Bursitis [Unknown]
  - Adverse event [Unknown]
  - Fibromyalgia [Unknown]
  - Eye operation [Unknown]
  - Urinary tract infection [Unknown]
  - Femur fracture [Unknown]
  - Road traffic accident [Unknown]
  - Hypercholesterolaemia [Not Recovered/Not Resolved]
  - Rotator cuff syndrome [Unknown]
  - Internal fixation of fracture [Unknown]
  - Neoplasm skin [Unknown]
  - Osteoarthritis [Unknown]
  - Drug ineffective [Unknown]
  - Iron deficiency anaemia [Unknown]
  - Post procedural infection [Unknown]
  - Urinary tract infection [Unknown]
  - Bronchitis [Unknown]
  - Pulmonary mass [Unknown]
  - Closed fracture manipulation [Recovered/Resolved]
  - Fall [Unknown]
  - Intramedullary rod insertion [Unknown]
  - Chronic kidney disease [Unknown]
  - Spondylolisthesis [Unknown]
  - Actinic keratosis [Unknown]
  - Vitamin D decreased [Unknown]
  - Meniscus injury [Unknown]
  - Gastritis [Unknown]
  - Meniscus injury [Unknown]
  - Intervertebral disc degeneration [Unknown]
  - Arthralgia [Unknown]
  - Gastrooesophageal reflux disease [Unknown]
  - Tibia fracture [Recovered/Resolved]
  - Open reduction of fracture [Recovered/Resolved]
  - Intramedullary rod insertion [Unknown]
  - Arthroscopy [Unknown]
  - Proctitis [Unknown]
  - Oesophagitis [Unknown]
  - Thoracic vertebral fracture [Unknown]
  - Hiatus hernia [Unknown]
  - Intervertebral disc degeneration [Unknown]
  - Sciatica [Unknown]
  - Gastrooesophageal reflux disease [Unknown]

NARRATIVE: CASE EVENT DATE: 2003
